FAERS Safety Report 10031319 (Version 1)
Quarter: 2014Q1

REPORT INFORMATION
  Report Type: Spontaneous
  Country: US (occurrence: None)
  Receive Date: 20140306
  Receipt Date: 20140306
  Transmission Date: 20141002
  Serious: Yes (Hospitalization, Other)
  Sender: FDA-Public Use
  Company Number: 163-21880-12083120

PATIENT
  Age: 57 Year
  Sex: Male

DRUGS (16)
  1. REVLIMID (LENALIDOMIDE)(25 MILLIGRAM, CAPSULES) [Suspect]
     Indication: PLASMA CELL MYELOMA
     Dosage: 21 IN 28 D
     Route: 048
     Dates: start: 201109
  2. VELCADE (BORTEZOMIB)(UKNOWN) [Concomitant]
  3. PORT FLUSH (HEPARIN SODIUM)(UKNOWN) [Concomitant]
  4. VITAMIN D (ERGOCALCIFEROL)(CAPSULES) [Concomitant]
  5. ACYCLOVIR(ACICLOVIR)(TABLETS) [Concomitant]
  6. LYRICA(PREGABALIN)(TABLETS( [Concomitant]
  7. PREVACID(LANSOPRAZOLE)(CAPSULES) [Concomitant]
  8. BYSTOLIC(NEBIVOLOL HYDROCHLORIDE)(TABLETS) [Concomitant]
  9. MULTIVITAMINS(MULTIVITAMINS)(CAPSULES) [Concomitant]
  10. VITAMIN D3(COLECALCIFEROL)(CAPSULES) [Concomitant]
  11. BACTRIM DS (BACTRIM)(CAPSULES) [Concomitant]
  12. NYSTATIN(NYSTATIN)(SUSPENSION) [Concomitant]
  13. ZOMETA(ZOLEDRONIC ACID) [Concomitant]
  14. MELPHALAN(MELPHALAN) [Concomitant]
  15. PLATELET TRANSFUSION (PLATELETS)(INJECTION FOR INFUSION) [Concomitant]
  16. RED BLOOD CELLS(RED BLOOD CELLS)(INJECTION FOR INFUSION) [Concomitant]

REACTIONS (2)
  - Plasma cell leukaemia [None]
  - Plasma cell myeloma [None]
